FAERS Safety Report 8278403-7 (Version None)
Quarter: 2012Q2

REPORT INFORMATION
  Report Type: 
  Country: None (occurrence: None)
  Receive Date: 20120412
  Receipt Date: 20111028
  Transmission Date: 20120825
  Serious: No
  Sender: FDA-Public Use
  Company Number: US-ASTRAZENECA-2011SE65306

PATIENT
  Sex: Male
  Weight: 90.7 kg

DRUGS (1)
  1. NEXIUM [Suspect]
     Route: 048

REACTIONS (7)
  - NERVOUSNESS [None]
  - DYSPEPSIA [None]
  - RENAL PAIN [None]
  - MEMORY IMPAIRMENT [None]
  - DISTURBANCE IN ATTENTION [None]
  - NAUSEA [None]
  - CREATININE RENAL CLEARANCE ABNORMAL [None]
